FAERS Safety Report 24058907 (Version 3)
Quarter: 2024Q3

REPORT INFORMATION
  Report Type: Spontaneous
  Country: FR (occurrence: FR)
  Receive Date: 20240708
  Receipt Date: 20240807
  Transmission Date: 20241016
  Serious: Yes (Death, Life-Threatening, Hospitalization, Other)
  Sender: AUROBINDO
  Company Number: FR-AFSSAPS-NC2024000782

PATIENT
  Age: 61 Year
  Sex: Male
  Weight: 74 kg

DRUGS (7)
  1. LAMOTRIGINE [Suspect]
     Active Substance: LAMOTRIGINE
     Indication: Depression
     Dosage: 100 MILLIGRAM, ONCE A DAY
     Route: 048
     Dates: start: 20240523, end: 20240530
  2. LAMOTRIGINE [Suspect]
     Active Substance: LAMOTRIGINE
     Dosage: 100 MILLIGRAM, ONCE A DAY
     Route: 048
     Dates: start: 20240529, end: 20240530
  3. LAMOTRIGINE [Suspect]
     Active Substance: LAMOTRIGINE
     Dosage: 25 MILLIGRAM, 3 TIMES A DAY
     Route: 048
     Dates: start: 20240523, end: 20240528
  4. VALPROMIDE [Suspect]
     Active Substance: VALPROMIDE
     Indication: Depression
     Dosage: 900 MILLIGRAM, ONCE A DAY
     Route: 048
     Dates: start: 20240530, end: 20240531
  5. DEPAKOTE [Suspect]
     Active Substance: DIVALPROEX SODIUM
     Indication: Depression
     Dosage: 750 MILLIGRAM, ONCE A DAY (250 MG X3/J)
     Route: 048
     Dates: start: 20240513, end: 20240520
  6. DEPAKOTE [Suspect]
     Active Substance: DIVALPROEX SODIUM
     Dosage: 900 MILLIGRAM, ONCE A DAY D (300 MG X 3/D, QD)
     Route: 048
     Dates: start: 20240530, end: 20240531
  7. TRIMEPRAZINE [Suspect]
     Active Substance: TRIMEPRAZINE
     Indication: Depression
     Dosage: 40 MILLIGRAM, ONCE A DAY
     Route: 048
     Dates: start: 20240513, end: 20240529

REACTIONS (2)
  - Toxic epidermal necrolysis [Fatal]
  - Hepatic cytolysis [Fatal]

NARRATIVE: CASE EVENT DATE: 20240531
